FAERS Safety Report 5625236-3 (Version None)
Quarter: 2008Q1

REPORT INFORMATION
  Report Type: 
  Country: None (occurrence: None)
  Receive Date: 20080208
  Receipt Date: 20080129
  Transmission Date: 20080703
  Serious: Yes (Death, Other)
  Sender: FDA-Public Use
  Company Number: 2007-03390

PATIENT
  Age: 69 Year
  Sex: Female
  Weight: 61 kg

DRUGS (2)
  1. VELCADE [Suspect]
     Indication: MULTIPLE MYELOMA
     Dosage: 2.00 MG, INTRAVENOUS
     Route: 042
     Dates: start: 20070918, end: 20070928
  2. DECADRON #1 (DEXAMETHASONE SODIUM PHOSPHATE) [Concomitant]

REACTIONS (11)
  - BONE MARROW FAILURE [None]
  - BRAIN OEDEMA [None]
  - CYSTITIS NONINFECTIVE [None]
  - GANGLIONEUROMA [None]
  - LIPOMA [None]
  - LOWER RESPIRATORY TRACT INFLAMMATION [None]
  - MENINGITIS [None]
  - OVARIAN GERM CELL TERATOMA BENIGN [None]
  - PAPILLARY THYROID CANCER [None]
  - PLATELET COUNT DECREASED [None]
  - UTERINE INFLAMMATION [None]
